FAERS Safety Report 12548638 (Version 1)
Quarter: 2016Q3

REPORT INFORMATION
  Report Type: Spontaneous
  Country: US (occurrence: US)
  Receive Date: 20160712
  Receipt Date: 20160712
  Transmission Date: 20161109
  Serious: No
  Sender: FDA-Public Use
  Company Number: US-TEVA-625555USA

PATIENT
  Sex: Male

DRUGS (3)
  1. LEVETLRACETAM [Concomitant]
  2. KEPPRA [Suspect]
     Active Substance: LEVETIRACETAM
  3. LAMOTRIGINE. [Suspect]
     Active Substance: LAMOTRIGINE

REACTIONS (1)
  - Aggression [Recovered/Resolved]
